FAERS Safety Report 16545155 (Version 1)
Quarter: 2019Q3

REPORT INFORMATION
  Report Type: Spontaneous
  Country: CA (occurrence: CA)
  Receive Date: 20190709
  Receipt Date: 20190709
  Transmission Date: 20191004
  Serious: Yes (Life-Threatening)
  Sender: FDA-Public Use
  Company Number: CA-BAYER-2019-128770

PATIENT
  Age: 38 Year
  Weight: 105 kg

DRUGS (1)
  1. GADOVIST [Suspect]
     Active Substance: GADOBUTROL
     Dosage: 10 ML
     Route: 037

REACTIONS (3)
  - Pruritus [None]
  - Swollen tongue [None]
  - Lip swelling [None]
